FAERS Safety Report 7065671-2 (Version None)
Quarter: 2010Q4

REPORT INFORMATION
  Report Type: 
  Country: None (occurrence: None)
  Receive Date: 20101027
  Receipt Date: 20100929
  Transmission Date: 20110411
  Serious: Yes (Hospitalization)
  Sender: FDA-Public Use
  Company Number: PHHY2010JP68438

PATIENT
  Sex: Male

DRUGS (3)
  1. STARSIS [Suspect]
     Indication: TYPE 2 DIABETES MELLITUS
     Dosage: 270 MG
     Route: 048
     Dates: start: 20090601, end: 20100225
  2. METFORMIN HYDROCHLORIDE [Concomitant]
     Dosage: 750 MG
  3. ALPHA GLUCOSIDASE INHIBITORS [Concomitant]
     Indication: TYPE 2 DIABETES MELLITUS

REACTIONS (3)
  - ANGINA PECTORIS [None]
  - HYPOGLYCAEMIA [None]
  - PANCREATIC CARCINOMA [None]
